FAERS Safety Report 15758016 (Version 2)
Quarter: 2019Q1

REPORT INFORMATION
  Report Type: Report from Study
  Country: US (occurrence: US)
  Receive Date: 20181225
  Receipt Date: 20190122
  Transmission Date: 20190417
  Serious: Yes (Hospitalization, Other)
  Sender: FDA-Public Use
  Company Number: US-ROCHE-2233641

PATIENT
  Age: 70 Year
  Sex: Female

DRUGS (7)
  1. ZELBORAF [Suspect]
     Active Substance: VEMURAFENIB
     Dosage: 4 TABS BY MOUTH 2 TIMES DAILY
     Route: 048
  2. COTELLIC [Suspect]
     Active Substance: COBIMETINIB
     Dosage: 3 TABS BY MOUTH ONCE BY DAILY
     Route: 048
     Dates: start: 20180807
  3. CHOLECALCIFEROL [Concomitant]
     Active Substance: CHOLECALCIFEROL
  4. TRIAMCINOLONE [Concomitant]
     Active Substance: TRIAMCINOLONE
     Route: 061
  5. TYLENOL [Concomitant]
     Active Substance: ACETAMINOPHEN
  6. COTELLIC [Suspect]
     Active Substance: COBIMETINIB
     Indication: MALIGNANT MELANOMA
     Dosage: QD FOR 21 DAYS EVERY 28 DAYS
     Route: 048
     Dates: start: 20180807
  7. ZELBORAF [Suspect]
     Active Substance: VEMURAFENIB
     Indication: MALIGNANT MELANOMA
     Route: 048
     Dates: start: 20180920

REACTIONS (4)
  - Renal impairment [Unknown]
  - Lower respiratory tract infection [Unknown]
  - Pain [Unknown]
  - Limb mass [Unknown]

NARRATIVE: CASE EVENT DATE: 20181205
